FAERS Safety Report 5957270-8 (Version None)
Quarter: 2008Q4

REPORT INFORMATION
  Report Type: 
  Country: None (occurrence: None)
  Receive Date: 20081118
  Receipt Date: 20081113
  Transmission Date: 20090506
  Serious: Yes (Hospitalization)
  Sender: FDA-Public Use
  Company Number: US-ROXANE LABORATORIES, INC.-2008-RO-00221RO

PATIENT
  Age: 36 Year
  Sex: Female

DRUGS (12)
  1. METHOTREXATE [Suspect]
     Indication: PSORIASIS
     Route: 048
  2. METHOTREXATE [Suspect]
     Indication: PSORIATIC ARTHROPATHY
     Route: 048
  3. PREDNISONE TAB [Suspect]
     Indication: PSORIASIS
  4. FUROSEMIDE [Suspect]
  5. METHOXSALEN [Suspect]
     Indication: PSORIASIS
     Route: 048
  6. METHOXSALEN [Suspect]
     Indication: PSORIATIC ARTHROPATHY
  7. UVA LIGHT [Suspect]
     Indication: PSORIASIS
  8. UVA LIGHT [Suspect]
     Indication: PSORIATIC ARTHROPATHY
  9. AZITHROMYCIN DIHYDRATE [Suspect]
     Indication: CELLULITIS
  10. METOPROLOL TARTRATE [Suspect]
  11. TRIAMCINOLONE [Suspect]
  12. CALCIPOTRIENE [Suspect]

REACTIONS (5)
  - ANAEMIA [None]
  - CHILLS [None]
  - DRUG TOXICITY [None]
  - MUCOCUTANEOUS ULCERATION [None]
  - TRANSAMINASES INCREASED [None]
